FAERS Safety Report 10188894 (Version 2)
Quarter: 2015Q2

REPORT INFORMATION
  Report Type: Spontaneous
  Country: US (occurrence: US)
  Receive Date: 20140522
  Receipt Date: 20150604
  Transmission Date: 20150821
  Serious: No
  Sender: FDA-Public Use
  Company Number: US-SA-2014SA028606

PATIENT
  Age: 61 Year
  Sex: Female

DRUGS (9)
  1. GLIMEPIRIDE. [Suspect]
     Active Substance: GLIMEPIRIDE
     Indication: PRODUCT USED FOR UNKNOWN INDICATION
     Route: 065
  2. VERAPAMIL [Concomitant]
     Active Substance: VERAPAMIL HYDROCHLORIDE
  3. LANTUS SOLOSTAR [Suspect]
     Active Substance: INSULIN GLARGINE
     Indication: PRODUCT USED FOR UNKNOWN INDICATION
     Dosage: TAKEN FROM: 3 WEEEK AGO DOSE:30 UNIT(S)
     Route: 065
     Dates: start: 20140210, end: 20140227
  4. WARFARIN [Concomitant]
     Active Substance: WARFARIN
  5. LANTUS SOLOSTAR [Suspect]
     Active Substance: INSULIN GLARGINE
     Indication: PRODUCT USED FOR UNKNOWN INDICATION
     Dosage: DOSE:40 UNIT(S)
     Route: 065
  6. LISINOPRIL. [Concomitant]
     Active Substance: LISINOPRIL
  7. BENADRYL [Suspect]
     Active Substance: DIPHENHYDRAMINE HYDROCHLORIDE
     Indication: PRODUCT USED FOR UNKNOWN INDICATION
     Route: 065
  8. METFORMIN [Suspect]
     Active Substance: METFORMIN HYDROCHLORIDE
     Indication: PRODUCT USED FOR UNKNOWN INDICATION
     Route: 065
  9. SOLOSTAR [Concomitant]
     Active Substance: DEVICE
     Dates: end: 20140227

REACTIONS (10)
  - Pruritus [Recovered/Resolved]
  - Somnolence [Unknown]
  - Heart rate increased [Unknown]
  - Injection site pain [Unknown]
  - Urticaria [Recovered/Resolved]
  - Lip swelling [Unknown]
  - Drug dose omission [Unknown]
  - Erythema [Unknown]
  - Nervousness [Unknown]
  - Peripheral swelling [Unknown]

NARRATIVE: CASE EVENT DATE: 20140227
